FAERS Safety Report 24113980 (Version 4)
Quarter: 2024Q3

REPORT INFORMATION
  Report Type: Spontaneous
  Country: CA (occurrence: CA)
  Receive Date: 20240720
  Receipt Date: 20240916
  Transmission Date: 20241016
  Serious: Yes (Other)
  Sender: CELLTRION
  Company Number: CA-PFIZER INC-202400092023

PATIENT

DRUGS (15)
  1. INFLECTRA [Suspect]
     Active Substance: INFLIXIMAB-DYYB
     Indication: Crohn^s disease
     Dosage: 10 MG/KG, WEEK 6 THEN EVERY 4 WEEKSFIRST 2 DOSE IN HOSPITAL
     Route: 042
     Dates: start: 20230502
  2. INFLECTRA [Suspect]
     Active Substance: INFLIXIMAB-DYYB
     Dosage: 10 MG/KG, WEEK 6 THEN EVERY 4 WEEKS, FIRST 2 DOSE IN HOSPITAL
     Route: 042
     Dates: start: 20240320
  3. INFLECTRA [Suspect]
     Active Substance: INFLIXIMAB-DYYB
     Dosage: 890 MG (10 MG/KG, WEEK 6 THEN EVERY 4 WEEKS, FIRST 2 DOSE IN HOSPITAL)
     Route: 042
     Dates: start: 20240417
  4. INFLECTRA [Suspect]
     Active Substance: INFLIXIMAB-DYYB
     Dosage: 10 MG/KG (890 MG), 3 WEEKS AND 6 DAYS (WEEK 6 THEN EVERY 4 WEEKS FIRST 2 DOSE IN HOSPITAL)
     Route: 042
     Dates: start: 20240514
  5. INFLECTRA [Suspect]
     Active Substance: INFLIXIMAB-DYYB
     Dosage: 900 MG, EVERY 4 WEEK
     Route: 042
     Dates: start: 20240611
  6. INFLECTRA [Suspect]
     Active Substance: INFLIXIMAB-DYYB
     Dosage: 920 MG (10 MG/KG, WEEK 6 THEN EVERY 4 WEEKSFIRST 2 DOSE IN HOSPITAL)
     Route: 042
     Dates: start: 20240710
  7. INFLECTRA [Suspect]
     Active Substance: INFLIXIMAB-DYYB
     Dosage: 920 MG (10 MG/KG, WEEK 6 THEN EVERY 4 WEEKSFIRST 2 DOSE IN HOSPITAL)
     Route: 042
     Dates: start: 20240710
  8. INFLECTRA [Suspect]
     Active Substance: INFLIXIMAB-DYYB
     Dosage: 930 MG, (10 MG/KG, WEEK 6 THEN EVERY 4 WEEKS FIRST 2 DOSE IN HOSPITAL)
     Route: 042
     Dates: start: 20240808
  9. INFLECTRA [Suspect]
     Active Substance: INFLIXIMAB-DYYB
     Dosage: 930 MG, (10 MG/KG), WEEK 6 THEN EVERY 4 WEEKS FIRST 2 DOSE IN HOSPITAL)
     Route: 042
     Dates: start: 20240808
  10. INFLECTRA [Suspect]
     Active Substance: INFLIXIMAB-DYYB
     Dosage: 940 MG (10 MG/KG), AFTER 3 WEEKS AND 6 DAYS, (EVERY 4 WEEKS)
     Route: 042
     Dates: start: 20240904
  11. CANDESARTAN [Concomitant]
     Active Substance: CANDESARTAN
     Dosage: 5 UG
  12. PREDNISONE [Concomitant]
     Active Substance: PREDNISONE
     Dosage: 1 DF, TAPERING
     Dates: end: 20230513
  13. SILODOSIN [Concomitant]
     Active Substance: SILODOSIN
     Dosage: 8 UG
  14. TRAZODONE [Concomitant]
     Active Substance: TRAZODONE HYDROCHLORIDE
     Dosage: 100 MG
  15. VENLAFAXINE [Concomitant]
     Active Substance: VENLAFAXINE HYDROCHLORIDE
     Dosage: 150 MG

REACTIONS (4)
  - Ostomy bag placement [Unknown]
  - Condition aggravated [Not Recovered/Not Resolved]
  - Off label use [Unknown]
  - Intentional product use issue [Unknown]

NARRATIVE: CASE EVENT DATE: 20240101
